FAERS Safety Report 17109200 (Version 1)
Quarter: 2019Q4

REPORT INFORMATION
  Report Type: Spontaneous
  Country: TR (occurrence: TR)
  Receive Date: 20191204
  Receipt Date: 20191204
  Transmission Date: 20200122
  Serious: Yes (Other)
  Sender: FDA-Public Use
  Company Number: TR-ALKEM LABORATORIES LIMITED-TR-ALKEM-2019-08794

PATIENT
  Age: 24 Year
  Sex: Male

DRUGS (4)
  1. COLCHICINE. [Suspect]
     Active Substance: COLCHICINE
     Indication: BEHCET^S SYNDROME
     Dosage: 0.5 MILLIGRAM, QD
     Route: 048
  2. WARFARIN [Concomitant]
     Active Substance: WARFARIN
     Indication: ANTICOAGULANT THERAPY
     Dosage: UNK
     Route: 065
  3. METHYLPREDNISOLONE. [Suspect]
     Active Substance: METHYLPREDNISOLONE
     Indication: BEHCET^S SYNDROME
     Dosage: 40 MILLIGRAM, QD
     Route: 048
  4. INERFERON ALPHA 2A [Suspect]
     Active Substance: INTERFERON ALFA-2A
     Indication: BEHCET^S SYNDROME
     Dosage: 4.5 MIU/WEEK
     Route: 058

REACTIONS (1)
  - Disease recurrence [Recovered/Resolved]
